FAERS Safety Report 23069216 (Version 1)
Quarter: 2023Q4

REPORT INFORMATION
  Report Type: Spontaneous
  Country: US (occurrence: None)
  Receive Date: 20231016
  Receipt Date: 20231016
  Transmission Date: 20240110
  Serious: Yes (Disabling)
  Sender: FDA-Public Use
  Company Number: None

PATIENT
  Age: 62 Year
  Sex: Female
  Weight: 74.25 kg

DRUGS (6)
  1. KEYTRUDA [Suspect]
     Active Substance: PEMBROLIZUMAB
     Indication: Breast cancer
  2. blood pressure meds [Concomitant]
  3. thyroid meds [Concomitant]
  4. stomach meds [Concomitant]
  5. anti anxiety meds [Concomitant]
  6. VITAMIN B12 [Concomitant]
     Active Substance: CYANOCOBALAMIN

REACTIONS (9)
  - Rash [None]
  - Pruritus [None]
  - Arthralgia [None]
  - Joint swelling [None]
  - Pain in extremity [None]
  - Inflammation [None]
  - Colitis [None]
  - Swelling [None]
  - Loss of personal independence in daily activities [None]

NARRATIVE: CASE EVENT DATE: 20230301
